FAERS Safety Report 12432867 (Version 1)
Quarter: 2016Q2

REPORT INFORMATION
  Report Type: Spontaneous
  Country: US (occurrence: None)
  Receive Date: 20160602
  Receipt Date: 20160602
  Transmission Date: 20160815
  Serious: Yes (Death)
  Sender: FDA-Public Use
  Company Number: None

PATIENT
  Age: 63 Year
  Sex: Male
  Weight: 53.25 kg

DRUGS (12)
  1. GABAPENTIN. [Concomitant]
     Active Substance: GABAPENTIN
  2. MORPHINE [Concomitant]
     Active Substance: MORPHINE
  3. ALLOPURINOL. [Concomitant]
     Active Substance: ALLOPURINOL
  4. DOCUSATE [Concomitant]
     Active Substance: DOCUSATE
  5. MULTI VIT [Concomitant]
  6. SILDENAFIL. [Concomitant]
     Active Substance: SILDENAFIL
  7. OMEPRAZOLE. [Concomitant]
     Active Substance: OMEPRAZOLE
  8. PROCHLORPERAZINE. [Concomitant]
     Active Substance: PROCHLORPERAZINE
  9. SPIRONOLACTONE. [Concomitant]
     Active Substance: SPIRONOLACTONE
  10. LEDIPASVIR/SOFOSBUVIR, 90/400 MG [Suspect]
     Active Substance: LEDIPASVIR\SOFOSBUVIR
     Indication: HEPATITIS C VIRUS TEST POSITIVE
     Route: 048
     Dates: start: 20160323, end: 20160406
  11. LEDIPASVIR/SOFOSBUVIR, 90/400 MG [Suspect]
     Active Substance: LEDIPASVIR\SOFOSBUVIR
     Indication: HEPATIC CIRRHOSIS
     Route: 048
     Dates: start: 20160323, end: 20160406
  12. OXYCODONE [Concomitant]
     Active Substance: OXYCODONE

REACTIONS (7)
  - Blood glucose decreased [None]
  - Unresponsive to stimuli [None]
  - Haematocrit abnormal [None]
  - Hypotension [None]
  - Circulatory collapse [None]
  - Haematochezia [None]
  - Haemoglobin abnormal [None]

NARRATIVE: CASE EVENT DATE: 20160406
